FAERS Safety Report 19102071 (Version 1)
Quarter: 2021Q2

REPORT INFORMATION
  Report Type: Spontaneous
  Country: CA (occurrence: CA)
  Receive Date: 20210407
  Receipt Date: 20210407
  Transmission Date: 20210717
  Serious: Yes (Other)
  Sender: FDA-Public Use
  Company Number: CA-BAUSCH-BL-2021-011507

PATIENT
  Age: 66 Year
  Sex: Female

DRUGS (4)
  1. DEXAMETHASONE. [Suspect]
     Active Substance: DEXAMETHASONE
     Indication: PRODUCT USED FOR UNKNOWN INDICATION
     Route: 065
  2. REVLIMID [Suspect]
     Active Substance: LENALIDOMIDE
     Dosage: FREQUENCY: 21 EVERY 28 DAYS
     Route: 048
  3. VELCADE [Concomitant]
     Active Substance: BORTEZOMIB
     Indication: PRODUCT USED FOR UNKNOWN INDICATION
     Dosage: POWDER FOR SOLUTION INTRAVENOUS, SINGLE USE VIAL
     Route: 065
  4. REVLIMID [Suspect]
     Active Substance: LENALIDOMIDE
     Indication: PLASMA CELL MYELOMA
     Dosage: FREQUENCY: 21 EVERY 28 DAYS
     Route: 048

REACTIONS (8)
  - Sensitive skin [Unknown]
  - Feeling abnormal [Unknown]
  - Mycobacterium avium complex infection [Unknown]
  - Cough [Unknown]
  - Fatigue [Unknown]
  - Pruritus [Unknown]
  - Mania [Unknown]
  - Dizziness [Unknown]
